FAERS Safety Report 6283935-7 (Version None)
Quarter: 2009Q3

REPORT INFORMATION
  Report Type: 
  Country: None (occurrence: None)
  Receive Date: 20090722
  Receipt Date: 20090722
  Transmission Date: 20100115
  Serious: Yes (Hospitalization)
  Sender: FDA-Public Use
  Company Number: None

PATIENT
  Age: 84 Year
  Sex: Male
  Weight: 50.8 kg

DRUGS (1)
  1. NAFCILLIN SODIUM [Suspect]
     Indication: JOINT ABSCESS
     Dosage: 2 GM OTHER IV
     Route: 042
     Dates: start: 20090407, end: 20090410

REACTIONS (3)
  - ACIDOSIS [None]
  - RENAL FAILURE ACUTE [None]
  - TUBULOINTERSTITIAL NEPHRITIS [None]
